FAERS Safety Report 6613606-6 (Version None)
Quarter: 2010Q1

REPORT INFORMATION
  Report Type: 
  Country: None (occurrence: None)
  Receive Date: 20100225
  Receipt Date: 20100216
  Transmission Date: 20100710
  Serious: Yes (Other)
  Sender: FDA-Public Use
  Company Number: AVE_01441_2010

PATIENT
  Sex: Female

DRUGS (3)
  1. CLONIDINE [Suspect]
     Indication: HYPERTENSION
     Dosage: (0.3 DF QD, VIA 1/WEEKLY PATCH TRANSDERMAL)
     Route: 062
     Dates: start: 20091001, end: 20091101
  2. VERAPAMIL [Concomitant]
  3. HYZAAR /01284801/ [Concomitant]

REACTIONS (2)
  - DRUG INEFFECTIVE [None]
  - PRODUCT QUALITY ISSUE [None]
